FAERS Safety Report 21519603 (Version 1)
Quarter: 2022Q4

REPORT INFORMATION
  Report Type: Report from Study
  Country: US (occurrence: None)
  Receive Date: 20221028
  Receipt Date: 20221028
  Transmission Date: 20230112
  Serious: Yes (Other)
  Sender: FDA-Public Use
  Company Number: 2022A355876

PATIENT
  Sex: Male
  Weight: 74.8 kg

DRUGS (1)
  1. LYNPARZA [Suspect]
     Active Substance: OLAPARIB
     Indication: Prostate cancer
     Route: 048
     Dates: start: 20220806

REACTIONS (6)
  - Bone marrow disorder [Unknown]
  - Orthostatic hypotension [Unknown]
  - Neuropathy peripheral [Unknown]
  - Blood pressure fluctuation [Unknown]
  - Anaemia [Unknown]
  - Fatigue [Unknown]
